FAERS Safety Report 10619988 (Version 2)
Quarter: 2014Q4

REPORT INFORMATION
  Report Type: Spontaneous
  Country: DE (occurrence: DE)
  Receive Date: 20141202
  Receipt Date: 20141202
  Transmission Date: 20150529
  Serious: Yes (Other)
  Sender: FDA-Public Use
  Company Number: DE-BAYER-2014-165092

PATIENT
  Age: 5 Year
  Sex: Female
  Weight: 18 kg

DRUGS (4)
  1. PROPOFOL. [Concomitant]
     Active Substance: PROPOFOL
     Indication: SEDATION
     Dosage: UNK
     Dates: start: 20141021, end: 20141021
  2. GADOVIST [Suspect]
     Active Substance: GADOBUTROL
     Indication: NUCLEAR MAGNETIC RESONANCE IMAGING BRAIN
     Dosage: 2 MMOL, ONCE
     Dates: start: 20141021, end: 20141021
  3. GADOVIST [Suspect]
     Active Substance: GADOBUTROL
     Indication: MOVEMENT DISORDER
  4. KETANEST S [Concomitant]
     Indication: SEDATION
     Dosage: UNK
     Dates: start: 20141021, end: 20141021

REACTIONS (8)
  - Cough [Recovered/Resolved]
  - Tremor [Recovered/Resolved]
  - Laryngospasm [Recovered/Resolved]
  - Respiratory failure [Recovered/Resolved]
  - Oxygen saturation decreased [Recovered/Resolved]
  - Disturbance in attention [Recovered/Resolved]
  - Erythema [Recovered/Resolved]
  - Bronchospasm [Recovered/Resolved]

NARRATIVE: CASE EVENT DATE: 20141021
